FAERS Safety Report 5901723-5 (Version None)
Quarter: 2008Q3

REPORT INFORMATION
  Report Type: 
  Country: None (occurrence: None)
  Receive Date: 20080929
  Receipt Date: 20080918
  Transmission Date: 20090109
  Serious: Yes (Hospitalization)
  Sender: FDA-Public Use
  Company Number: B0538946A

PATIENT
  Sex: Female

DRUGS (4)
  1. FLOLAN [Suspect]
     Route: 065
  2. SILDENAFIL CITRATE [Suspect]
     Route: 065
  3. DIURETIC [Concomitant]
  4. ANTICOAGULANT [Concomitant]

REACTIONS (6)
  - OEDEMA [None]
  - OLIGURIA [None]
  - OVERWEIGHT [None]
  - PULMONARY ARTERIAL HYPERTENSION [None]
  - RESPIRATORY FAILURE [None]
  - TACHYCARDIA [None]
